FAERS Safety Report 7776826-3 (Version None)
Quarter: 2011Q3

REPORT INFORMATION
  Report Type: 
  Country: None (occurrence: None)
  Receive Date: 20110923
  Receipt Date: 20110923
  Transmission Date: 20111222
  Serious: Yes (Hospitalization)
  Sender: FDA-Public Use
  Company Number: None

PATIENT
  Sex: Female
  Weight: 59.9 kg

DRUGS (3)
  1. OXYCODONE [Concomitant]
  2. IFOSFAMIDE [Suspect]
     Dosage: 8.1 G
  3. PACLITAXEL [Suspect]
     Dosage: 230 MG

REACTIONS (11)
  - CANDIDIASIS [None]
  - NEOPLASM PROGRESSION [None]
  - GENERAL PHYSICAL HEALTH DETERIORATION [None]
  - COLONIC OBSTRUCTION [None]
  - URETERIC OBSTRUCTION [None]
  - NEUTROPENIA [None]
  - CRYING [None]
  - FUNGAEMIA [None]
  - RESPIRATORY FAILURE [None]
  - PLEURAL EFFUSION [None]
  - HALLUCINATION [None]
